FAERS Safety Report 25022621 (Version 1)
Quarter: 2025Q1

REPORT INFORMATION
  Report Type: Spontaneous
  Country: FR (occurrence: FR)
  Receive Date: 20250228
  Receipt Date: 20250228
  Transmission Date: 20250408
  Serious: Yes (Death, Hospitalization)
  Sender: MYLAN
  Company Number: FR-MYLANLABS-2025M1015383

PATIENT
  Age: 90 Year
  Sex: Female

DRUGS (1)
  1. ALLOPURINOL [Suspect]
     Active Substance: ALLOPURINOL
     Indication: Product used for unknown indication

REACTIONS (9)
  - Drug reaction with eosinophilia and systemic symptoms [Fatal]
  - Pancreatitis acute [Fatal]
  - Fulminant type 1 diabetes mellitus [Fatal]
  - Acute respiratory failure [Fatal]
  - Loss of consciousness [Fatal]
  - Seizure [Fatal]
  - Metabolic acidosis [Fatal]
  - Blood lactic acid increased [Fatal]
  - Acute kidney injury [Fatal]
